FAERS Safety Report 5077855-3 (Version None)
Quarter: 2006Q3

REPORT INFORMATION
  Report Type: 
  Country: None (occurrence: None)
  Receive Date: 20060720
  Receipt Date: 20051118
  Transmission Date: 20061208
  Serious: Yes (Hospitalization)
  Sender: FDA-Public Use
  Company Number: 05USA0243

PATIENT
  Age: 76 Year
  Sex: Female

DRUGS (16)
  1. AGGRASTAT [Suspect]
     Indication: ACUTE CORONARY SYNDROME
     Dosage: 0.4 MG/KG/MIN X 30 MIN
     Dates: start: 20051011, end: 20051011
  2. AGGRASTAT [Suspect]
     Indication: ACUTE CORONARY SYNDROME
     Dosage: 0.1 MG/KG/MIN X 2 DAYS
     Dates: start: 20051011, end: 20051012
  3. ENOXAPARIN SODIUM [Suspect]
     Indication: DRUG USE FOR UNKNOWN INDICATION
     Dates: start: 20051016
  4. ASA (ACETYLSALICYLIC ACID) (75 MILLIGRAM, POWDER) [Suspect]
     Indication: ACUTE CORONARY SYNDROME
     Dosage: 75 MG/DAILY
     Dates: start: 20051011
  5. CLOPIDOGREL BISULFATE [Suspect]
     Indication: ACUTE CORONARY SYNDROME
     Dosage: 75 MG/DAILY
     Dates: start: 20051011
  6. NADROPARIN (NADROPARIN) (INJECTION) [Suspect]
     Indication: ASTHMA
     Dates: start: 20051011, end: 20051016
  7. SINGULAIR [Concomitant]
  8. ATORVASTATIN (ATORVASTATIN CALCIUM) [Concomitant]
  9. BAMBUTEROL (BAMBUTEROL) [Concomitant]
  10. DILTIAZEM [Concomitant]
  11. FUROSEMIDE [Concomitant]
  12. GLIMEPIRIDE [Concomitant]
  13. LORATADINE [Concomitant]
  14. RABEPRAZOLE (RABEPRAZOLE) [Concomitant]
  15. RAMIPRIL [Concomitant]
  16. VALSARTAN [Concomitant]

REACTIONS (2)
  - ANAEMIA [None]
  - HAEMATOMA [None]
